FAERS Safety Report 13681458 (Version 1)
Quarter: 2017Q2

REPORT INFORMATION
  Report Type: Spontaneous
  Country: FR (occurrence: FR)
  Receive Date: 20170623
  Receipt Date: 20170623
  Transmission Date: 20170830
  Serious: Yes (Other)
  Sender: FDA-Public Use
  Company Number: FR-009507513-1706FRA006717

PATIENT
  Age: 86 Year
  Sex: Female

DRUGS (18)
  1. INVANZ [Suspect]
     Active Substance: ERTAPENEM SODIUM
     Indication: DEVICE RELATED INFECTION
     Dosage: 2G (1 G, 2 IN 1 DAY)
     Route: 042
     Dates: start: 20170516, end: 20170530
  2. VANCOMYCIN [Suspect]
     Active Substance: VANCOMYCIN
     Indication: DEVICE RELATED INFECTION
     Dosage: 2G (2 G, 1 IN 1 DAY)
     Route: 042
     Dates: start: 20170512, end: 20170519
  3. RIFADIN [Suspect]
     Active Substance: RIFAMPIN
     Indication: DEVICE RELATED INFECTION
     Dosage: 4 DF (2 DF, 2 IN 1 DAY)
     Route: 048
     Dates: start: 20170514, end: 20170516
  4. ZOLPIDEM [Concomitant]
     Active Substance: ZOLPIDEM\ZOLPIDEM TARTRATE
  5. ACUPAN [Concomitant]
     Active Substance: NEFOPAM HYDROCHLORIDE
  6. ATARAX [Concomitant]
     Active Substance: HYDROXYZINE HYDROCHLORIDE
  7. SERETIDE [Concomitant]
     Active Substance: FLUTICASONE PROPIONATE\SALMETEROL XINAFOATE
  8. SERESTA [Concomitant]
     Active Substance: OXAZEPAM
  9. MOPRAL (OMEPRAZOLE) [Concomitant]
     Active Substance: OMEPRAZOLE SODIUM
  10. ACETAMINOPHEN. [Concomitant]
     Active Substance: ACETAMINOPHEN
  11. TARDYFERON B9 (FERROUS SULFATE (+) FOLIC ACID) [Suspect]
     Active Substance: FERROUS SULFATE\FOLIC ACID
     Dosage: 2 DF (1 DF, 2 IN 1 DAY)
     Route: 048
     Dates: start: 20170425
  12. ZOPICLONE [Concomitant]
     Active Substance: ZOPICLONE
  13. PAROXETINE HYDROCHLORIDE. [Concomitant]
     Active Substance: PAROXETINE HYDROCHLORIDE
  14. BACTRIM [Suspect]
     Active Substance: SULFAMETHOXAZOLE\TRIMETHOPRIM
     Indication: DEVICE RELATED INFECTION
     Dosage: 3 DF (1 DF, 3 IN 1 DAY)
     Route: 048
     Dates: start: 20170519
  15. HALDOL [Concomitant]
     Active Substance: HALOPERIDOL
  16. RIFADIN [Suspect]
     Active Substance: RIFAMPIN
     Dosage: 3 DF (3 DF, 1 IN 1 DAY)
     Route: 048
     Dates: start: 20170517
  17. LEDERFOLINE [Suspect]
     Active Substance: LEUCOVORIN CALCIUM
     Dosage: 1 DF (1 DF, 1 IN 1 DAY)
     Route: 048
     Dates: start: 20170519
  18. MONTELUKAST SODIUM. [Concomitant]
     Active Substance: MONTELUKAST SODIUM

REACTIONS (2)
  - Hallucination [Recovered/Resolved]
  - Confusional state [Recovered/Resolved]

NARRATIVE: CASE EVENT DATE: 20170522
